FAERS Safety Report 4710815-8 (Version None)
Quarter: 2005Q3

REPORT INFORMATION
  Report Type: 
  Country: None (occurrence: None)
  Receive Date: 20050708
  Receipt Date: 20050626
  Transmission Date: 20060218
  Serious: Yes (Other)
  Sender: FDA-Public Use
  Company Number: 2005092615

PATIENT
  Age: 14 Year
  Sex: Male
  Weight: 72.5755 kg

DRUGS (1)
  1. COOL MINT LISTERINE (MENTHOL, METHYL SALICYLATE, EUCALYPTOL, THYMOL) [Suspect]
     Dosage: 1 LITER BOTTLE ONCE, ORAL
     Route: 048
     Dates: start: 20050626, end: 20050626

REACTIONS (2)
  - ABDOMINAL PAIN UPPER [None]
  - OVERDOSE [None]
